FAERS Safety Report 16589119 (Version 1)
Quarter: 2019Q3

REPORT INFORMATION
  Report Type: Spontaneous
  Country: DE (occurrence: DE)
  Receive Date: 20190718
  Receipt Date: 20190718
  Transmission Date: 20191004
  Serious: Yes (Hospitalization, Other)
  Sender: FDA-Public Use
  Company Number: DE-SA-2019SA186291

PATIENT
  Age: 81 Year
  Sex: Female

DRUGS (22)
  1. MAGNESIUM [Concomitant]
     Active Substance: MAGNESIUM
     Dosage: UNK, UNK (NK MG, 0-0-1-0)
  2. LEVOTHYROXINE SODIUM. [Concomitant]
     Active Substance: LEVOTHYROXINE SODIUM
     Dosage: 100 ?G, 1-0-0-0
  3. DIGITOXIN [Concomitant]
     Active Substance: DIGITOXIN
     Dosage: 0.07 MG, 1-0-0-0
  4. FENTANYL. [Suspect]
     Active Substance: FENTANYL
     Dosage: 0.2 MG, NEEDED
  5. XIPAMID [Suspect]
     Active Substance: XIPAMIDE
     Dosage: 20 MG, 0.5-0-0.5-0
  6. METAMIZOLE [Concomitant]
     Active Substance: METAMIZOLE
     Dosage: 500 MG, 1-1-1-0
  7. ACETYLSALICYLIC ACID [Suspect]
     Active Substance: ASPIRIN
     Dosage: 100 MG, 1-0-0-0
  8. GINKOBIL [Concomitant]
     Active Substance: GINKGO
     Dosage: UNK 240 MG, 1-0-1-0
  9. VALSARTAN. [Concomitant]
     Active Substance: VALSARTAN
     Dosage: 80 MG, 1-0-0-0
  10. METOPROLOL. [Concomitant]
     Active Substance: METOPROLOL
     Dosage: 47.5 MG, 0.5-0-0.5-0
  11. LEVODOPA [Concomitant]
     Active Substance: LEVODOPA
     Dosage: 100|25 MG, 0-0-1-0
  12. PREGABALIN. [Concomitant]
     Active Substance: PREGABALIN
     Dosage: 50 MG, 1-0-1-0
  13. PANTOPRAZOLE [Concomitant]
     Active Substance: PANTOPRAZOLE
     Dosage: 40 MG, 1-0-1-0
  14. CYANOCOBALAMIN. [Concomitant]
     Active Substance: CYANOCOBALAMIN
     Dosage: NK MG, 0-1-0-0
  15. FUROSEMIDE. [Suspect]
     Active Substance: FUROSEMIDE
     Dosage: NK MG, 0.5-0-0-0
  16. MOVICOL [MACROGOL;POTASSIUM CHLORIDE;SODIUM BICARBONATE;SODIUM CHLORID [Concomitant]
     Dosage: NK MG, NEEDED
  17. LEVEMIR [Concomitant]
     Active Substance: INSULIN DETEMIR
     Dosage: NK MG, NK
  18. NOVORAPID [Concomitant]
     Active Substance: INSULIN ASPART
     Dosage: NK MG,ACCORDING TO PLAN
  19. BUPRENORPHINE. [Suspect]
     Active Substance: BUPRENORPHINE
     Dosage: 52.5 ?G, ALTERNATE ALL 3 DAYS
  20. CLOPIDOGREL BISULFATE. [Suspect]
     Active Substance: CLOPIDOGREL BISULFATE
     Dosage: 75 MG, 0-1-0-0
  21. CLONIDINE. [Concomitant]
     Active Substance: CLONIDINE
     Dosage: UNK 75 MG, 1-1-1-0
  22. CIPROFLOXACIN. [Concomitant]
     Active Substance: CIPROFLOXACIN
     Dosage: 250 MG, 1-0-1-0 (SINCE 23.06.2017)
     Dates: start: 20170623

REACTIONS (3)
  - Syncope [Unknown]
  - Dehydration [Unknown]
  - Anaemia [Unknown]
